FAERS Safety Report 8051389-6 (Version None)
Quarter: 2012Q1

REPORT INFORMATION
  Report Type: 
  Country: None (occurrence: None)
  Receive Date: 20120117
  Receipt Date: 20120113
  Transmission Date: 20120608
  Serious: Yes (Hospitalization)
  Sender: FDA-Public Use
  Company Number: DE-ROCHE-693824

PATIENT
  Sex: Male
  Weight: 75 kg

DRUGS (7)
  1. BLINDED TENOFOVIR [Suspect]
     Indication: HEPATITIS VIRAL
     Dosage: DOSE BLINDED, FREQUENCY DAILY, LAST DOSE PIOR TO SAE: 23 FEBRUARY 2010
     Route: 048
     Dates: start: 20090901, end: 20100223
  2. DOCITON [Concomitant]
  3. PANTOZOL [Concomitant]
     Dates: start: 20060101
  4. MILK THISTLE [Concomitant]
     Dates: start: 20050101
  5. PEGINTERFERON ALFA-2A [Suspect]
     Indication: HEPATITIS VIRAL
     Dosage: DOSE: 135 UNIT: 1, LAST DOSE PIOR TO SAE: 23 FEBRUARY 2010
     Route: 058
     Dates: start: 20090901, end: 20100223
  6. DOCITON [Concomitant]
  7. PANTOZOL [Concomitant]
     Dates: start: 20100520

REACTIONS (3)
  - GASTROINTESTINAL HAEMORRHAGE [None]
  - ANAL ULCER [None]
  - GASTRITIS [None]
